FAERS Safety Report 10450166 (Version 1)
Quarter: 2014Q3

REPORT INFORMATION
  Report Type: Spontaneous
  Country: US (occurrence: US)
  Receive Date: 20140912
  Receipt Date: 20140912
  Transmission Date: 20150326
  Serious: Yes (Other)
  Sender: FDA-Public Use
  Company Number: US-PFIZER INC-2014250109

PATIENT
  Age: 57 Year
  Sex: Female
  Weight: 127 kg

DRUGS (2)
  1. LIPITOR [Suspect]
     Active Substance: ATORVASTATIN CALCIUM
     Indication: BLOOD CHOLESTEROL INCREASED
     Dosage: UNK, 2X/DAY
     Dates: start: 2000, end: 2010
  2. QUETIAPINE [Concomitant]
     Active Substance: QUETIAPINE
     Indication: ANXIETY
     Dosage: 50 MG, 2X/DAY

REACTIONS (3)
  - Hepatitis B [Unknown]
  - Back pain [Unknown]
  - Malaise [Unknown]
